FAERS Safety Report 5689600-9 (Version None)
Quarter: 2008Q1

REPORT INFORMATION
  Report Type: 
  Country: None (occurrence: None)
  Receive Date: 20080328
  Receipt Date: 20080319
  Transmission Date: 20080703
  Serious: Yes (Other)
  Sender: FDA-Public Use
  Company Number: 2008-01932

PATIENT
  Age: 10 Year
  Sex: Male

DRUGS (1)
  1. TRELSTAR [Suspect]
     Indication: ADRENOGENITAL SYNDROME
     Dosage: INTRAMUSCULAR
     Route: 030

REACTIONS (2)
  - IMPAIRED HEALING [None]
  - RESORPTION BONE INCREASED [None]
